FAERS Safety Report 8344150-6 (Version None)
Quarter: 2012Q2

REPORT INFORMATION
  Report Type: 
  Country: None (occurrence: None)
  Receive Date: 20120508
  Receipt Date: 20120425
  Transmission Date: 20120825
  Serious: Yes (Other)
  Sender: FDA-Public Use
  Company Number: PHHY2012BR036243

PATIENT
  Sex: Female

DRUGS (17)
  1. CARVEDILOL [Concomitant]
  2. ARTOGLICO [Concomitant]
  3. TOPIRAMATE [Concomitant]
  4. FUROSEMIDE [Concomitant]
  5. CALCIUM [Suspect]
  6. NPH INSULIN [Concomitant]
  7. APRESOLINE [Suspect]
  8. GABAPENTIN [Concomitant]
  9. TRAJENTA [Concomitant]
  10. ARTOVASTATIN [Concomitant]
  11. CITALOPRAM HYDROBROMIDE [Concomitant]
  12. ASPIRIN [Concomitant]
  13. RASILEZ [Suspect]
  14. INSULIN [Concomitant]
  15. PANTOPRAZOLE [Concomitant]
  16. AETROPOTINA [Concomitant]
  17. ETNA [Concomitant]

REACTIONS (4)
  - DIABETES MELLITUS [None]
  - RENAL FAILURE [None]
  - HYPERTENSION [None]
  - CARDIAC DISORDER [None]
